FAERS Safety Report 6851385-8 (Version None)
Quarter: 2010Q3

REPORT INFORMATION
  Report Type: 
  Country: None (occurrence: None)
  Receive Date: 20100717
  Receipt Date: 20080115
  Transmission Date: 20110219
  Serious: Yes (Other)
  Sender: FDA-Public Use
  Company Number: US-PFIZER INC-2008005329

PATIENT
  Sex: Male
  Weight: 90.909 kg

DRUGS (4)
  1. CHANTIX [Suspect]
     Indication: SMOKING CESSATION THERAPY
     Route: 048
     Dates: start: 20080114
  2. CELEBREX [Concomitant]
  3. KLONOPIN [Concomitant]
  4. VICODIN [Concomitant]

REACTIONS (3)
  - DISORIENTATION [None]
  - HEADACHE [None]
  - NIGHTMARE [None]
